FAERS Safety Report 7323536-2 (Version None)
Quarter: 2011Q1

REPORT INFORMATION
  Report Type: 
  Country: None (occurrence: None)
  Receive Date: 20110217
  Receipt Date: 20110202
  Transmission Date: 20110831
  Serious: Yes (Other)
  Sender: FDA-Public Use
  Company Number: IPC201102-000111

PATIENT
  Age: 78 Year
  Sex: Male

DRUGS (4)
  1. HYDROCHLOROTHIAZIDE [Suspect]
     Indication: HYPERTENSION
  2. IBUPROFEN [Suspect]
     Indication: PAIN
  3. IRBESARTAN [Suspect]
     Indication: HYPERTENSION
  4. PARACETAMOL [Suspect]
     Indication: PAIN

REACTIONS (3)
  - LICHENOID KERATOSIS [None]
  - PHOTOSENSITIVITY REACTION [None]
  - BLOOD PRESSURE INADEQUATELY CONTROLLED [None]
